FAERS Safety Report 8058757-7 (Version None)
Quarter: 2012Q1

REPORT INFORMATION
  Report Type: 
  Country: None (occurrence: None)
  Receive Date: 20120119
  Receipt Date: 20120119
  Transmission Date: 20120608
  Serious: Yes (Disabling, Other)
  Sender: FDA-Public Use
  Company Number: None

PATIENT
  Sex: Female
  Weight: 73.9363 kg

DRUGS (1)
  1. LEVOFLOXACIN [Suspect]
     Dosage: 750 MG 1 TABLET EVERY 48 HOURS
     Dates: start: 20110714, end: 20110724

REACTIONS (4)
  - DYSPNOEA [None]
  - ABDOMINAL PAIN UPPER [None]
  - ARTHRALGIA [None]
  - BACK PAIN [None]
